FAERS Safety Report 7525237-4 (Version None)
Quarter: 2011Q2

REPORT INFORMATION
  Report Type: 
  Country: None (occurrence: None)
  Receive Date: 20110602
  Receipt Date: 20110602
  Transmission Date: 20111010
  Serious: Yes (Other)
  Sender: FDA-Public Use
  Company Number: None

PATIENT
  Age: 68 Year
  Sex: Female
  Weight: 68.9467 kg

DRUGS (1)
  1. PRADAXA [Suspect]
     Indication: ATRIAL FIBRILLATION
     Dosage: 150 MG TWICE A DAY PO
     Route: 048
     Dates: start: 20110328, end: 20110531

REACTIONS (7)
  - JOINT SWELLING [None]
  - VULVOVAGINAL DRYNESS [None]
  - DRY EYE [None]
  - DYSPHAGIA [None]
  - NASAL DRYNESS [None]
  - OEDEMA PERIPHERAL [None]
  - DRY MOUTH [None]
